FAERS Safety Report 24673894 (Version 4)
Quarter: 2025Q1

REPORT INFORMATION
  Report Type: Report from Study
  Country: US (occurrence: US)
  Receive Date: 20241128
  Receipt Date: 20250303
  Transmission Date: 20250409
  Serious: No
  Sender: ACADIA PHARMACEUTICALS
  Company Number: US-ACADIA PHARMACEUTICALS INC.-ACA-2024-TRF-007498

PATIENT

DRUGS (5)
  1. DAYBUE [Suspect]
     Active Substance: TROFINETIDE
     Indication: Rett syndrome
     Dosage: 25 MILLILITER, QD
     Route: 048
     Dates: start: 202411
  2. DAYBUE [Suspect]
     Active Substance: TROFINETIDE
     Dosage: 28 MILLILITER, BID
     Route: 048
     Dates: start: 20241111
  3. DAYBUE [Suspect]
     Active Substance: TROFINETIDE
     Dosage: 28 MILLILITER, QD
     Route: 048
  4. DAYBUE [Suspect]
     Active Substance: TROFINETIDE
     Route: 048
  5. DAYBUE [Suspect]
     Active Substance: TROFINETIDE
     Dosage: 40 MILLILITER, BID
     Route: 048
     Dates: start: 202411

REACTIONS (8)
  - Constipation [Not Recovered/Not Resolved]
  - Faeces soft [Not Recovered/Not Resolved]
  - Diarrhoea [Not Recovered/Not Resolved]
  - Decreased appetite [Recovering/Resolving]
  - Drug ineffective [Not Recovered/Not Resolved]
  - Inappropriate schedule of product administration [Not Recovered/Not Resolved]
  - Intentional dose omission [Unknown]
  - Underdose [Not Recovered/Not Resolved]

NARRATIVE: CASE EVENT DATE: 20250131
